FAERS Safety Report 6983121-9 (Version None)
Quarter: 2010Q3

REPORT INFORMATION
  Report Type: 
  Country: None (occurrence: None)
  Receive Date: 20100914
  Receipt Date: 20100603
  Transmission Date: 20110219
  Serious: No
  Sender: FDA-Public Use
  Company Number: US-PFIZER INC-2010070587

PATIENT
  Age: 63 Year
  Sex: Female
  Weight: 57 kg

DRUGS (2)
  1. LYRICA [Suspect]
     Indication: FIBROMYALGIA
     Dosage: UNK
     Route: 048
     Dates: start: 20090101
  2. LYRICA [Suspect]
     Indication: SLEEP DISORDER

REACTIONS (5)
  - BLOOD TESTOSTERONE INCREASED [None]
  - FIBROMYALGIA [None]
  - HEADACHE [None]
  - SEXUAL DYSFUNCTION [None]
  - SOMNOLENCE [None]
